FAERS Safety Report 5079556-4 (Version None)
Quarter: 2006Q3

REPORT INFORMATION
  Report Type: 
  Country: None (occurrence: None)
  Receive Date: 20060811
  Receipt Date: 20060811
  Transmission Date: 20061208
  Serious: Yes (Hospitalization)
  Sender: FDA-Public Use
  Company Number: None

PATIENT
  Age: 63 Year
  Sex: Male

DRUGS (1)
  1. FENTANYL [Suspect]
     Indication: SEDATION
     Dates: start: 20060627, end: 20060627

REACTIONS (3)
  - BLOOD PRESSURE SYSTOLIC DECREASED [None]
  - POST PROCEDURAL HAEMATOMA [None]
  - PROCEDURAL COMPLICATION [None]
